FAERS Safety Report 6568645-0 (Version None)
Quarter: 2010Q1

REPORT INFORMATION
  Report Type: 
  Country: None (occurrence: None)
  Receive Date: 20100203
  Receipt Date: 20100121
  Transmission Date: 20100710
  Serious: Yes (Other)
  Sender: FDA-Public Use
  Company Number: PHEH2006US04720

PATIENT
  Sex: Male

DRUGS (8)
  1. AREDIA [Suspect]
  2. ZOMETA [Suspect]
     Dosage: UNK
  3. WARFARIN SODIUM [Concomitant]
     Dosage: 1 MG, QD
  4. CLARITIN-D [Concomitant]
  5. ALEVE [Concomitant]
     Dosage: 220 MG, QD
  6. CLINDAMYCIN [Concomitant]
     Dosage: 150 MG, Q6H
  7. CHLORHEXIDINE GLUCONATE [Concomitant]
  8. MEGACE [Concomitant]

REACTIONS (10)
  - ANAEMIA [None]
  - EMOTIONAL DISTRESS [None]
  - IMPAIRED GASTRIC EMPTYING [None]
  - INJURY [None]
  - MOUTH ULCERATION [None]
  - OESOPHAGITIS ULCERATIVE [None]
  - OSTEOARTHRITIS [None]
  - OSTEONECROSIS [None]
  - PAIN [None]
  - SCROTAL CYST [None]
